FAERS Safety Report 22058904 (Version 1)
Quarter: 2023Q1

REPORT INFORMATION
  Report Type: Report from Study
  Country: US (occurrence: US)
  Receive Date: 20230303
  Receipt Date: 20230303
  Transmission Date: 20230417
  Serious: Yes (Hospitalization)
  Sender: FDA-Public Use
  Company Number: US-JNJFOC-20211155119

PATIENT
  Age: 78 Year

DRUGS (2)
  1. TECLISTAMAB [Suspect]
     Active Substance: TECLISTAMAB
     Indication: Plasma cell myeloma
     Dosage: MOST RECENT DOSE-04-NOV-2021?MED KIT NUMBER-600999, 601000, 601001.
     Route: 058
     Dates: start: 20211001
  2. DARATUMUMAB [Suspect]
     Active Substance: DARATUMUMAB
     Indication: Plasma cell myeloma
     Dosage: MOST RECENT DOSE-04-NOV-2021?MED KIT NUMBER-103117
     Route: 058
     Dates: start: 20210930

REACTIONS (1)
  - Cytomegalovirus infection reactivation [Not Recovered/Not Resolved]

NARRATIVE: CASE EVENT DATE: 20211118
